FAERS Safety Report 13976988 (Version 1)
Quarter: 2017Q3

REPORT INFORMATION
  Report Type: Spontaneous
  Country: US (occurrence: US)
  Receive Date: 20170914
  Receipt Date: 20170914
  Transmission Date: 20171128
  Serious: No
  Sender: FDA-Public Use
  Company Number: US-ASTELLAS-2017US007827

PATIENT
  Sex: Male

DRUGS (1)
  1. XTANDI [Suspect]
     Active Substance: ENZALUTAMIDE
     Indication: PROSTATE CANCER METASTATIC
     Route: 065

REACTIONS (7)
  - Personality change [Unknown]
  - Rhinorrhoea [Unknown]
  - Anxiety [Unknown]
  - Upper-airway cough syndrome [Unknown]
  - Cough [Unknown]
  - Muscle tightness [Unknown]
  - Fatigue [Unknown]
